FAERS Safety Report 7718993-3 (Version None)
Quarter: 2011Q3

REPORT INFORMATION
  Report Type: 
  Country: None (occurrence: None)
  Receive Date: 20110830
  Receipt Date: 20110825
  Transmission Date: 20111222
  Serious: Yes (Hospitalization)
  Sender: FDA-Public Use
  Company Number: FR-VIIV HEALTHCARE LIMITED-B0667795A

PATIENT
  Sex: Female

DRUGS (4)
  1. INVIRASE [Suspect]
     Indication: HIV INFECTION
     Route: 064
     Dates: start: 20090720, end: 20091105
  2. RETROVIR [Suspect]
     Indication: ANTIVIRAL PROPHYLAXIS
     Dosage: 1.1ML TWICE PER DAY
     Route: 048
     Dates: start: 20091105, end: 20091217
  3. NORVIR [Suspect]
     Indication: HIV INFECTION
     Route: 064
     Dates: start: 20090720, end: 20091105
  4. COMBIVIR [Suspect]
     Indication: HIV INFECTION
     Route: 064
     Dates: start: 20090720, end: 20091105

REACTIONS (2)
  - MATERNAL EXPOSURE DURING PREGNANCY [None]
  - EOSINOPHILIA [None]
